FAERS Safety Report 23338066 (Version 7)
Quarter: 2024Q3

REPORT INFORMATION
  Report Type: Report from Study
  Country: US (occurrence: US)
  Receive Date: 20231226
  Receipt Date: 20240702
  Transmission Date: 20241017
  Serious: Yes (Other)
  Sender: NOVARTIS
  Company Number: US-002147023-NVSC2023US272365

PATIENT
  Age: 65 Year
  Sex: Male

DRUGS (3)
  1. VIJOICE [Suspect]
     Active Substance: ALPELISIB
     Indication: PIK3CA related overgrowth spectrum
     Dosage: 250 MG, QD
     Route: 048
     Dates: start: 20231124, end: 20240104
  2. VIJOICE [Suspect]
     Active Substance: ALPELISIB
     Indication: Adenocarcinoma
  3. TABRECTA [Suspect]
     Active Substance: CAPMATINIB
     Indication: Product used for unknown indication
     Dosage: UNK
     Route: 065

REACTIONS (24)
  - Bone cancer [Recovered/Resolved]
  - Adenocarcinoma [Unknown]
  - Metastases to bone [Unknown]
  - Metastases to pelvis [Unknown]
  - Metastases to lung [Unknown]
  - Dysgeusia [Unknown]
  - Diarrhoea [Recovered/Resolved]
  - Fatigue [Unknown]
  - Stomatitis [Recovered/Resolved]
  - Vomiting [Unknown]
  - Rash [Recovering/Resolving]
  - Pelvic pain [Unknown]
  - Back pain [Unknown]
  - Confusional state [Unknown]
  - Dry skin [Unknown]
  - Dry mouth [Unknown]
  - Thirst [Unknown]
  - Limb discomfort [Recovered/Resolved]
  - Asthenia [Recovered/Resolved]
  - Emotional distress [Recovered/Resolved]
  - Memory impairment [Recovered/Resolved]
  - Product use issue [Unknown]
  - Thinking abnormal [Unknown]
  - Product use in unapproved indication [Unknown]

NARRATIVE: CASE EVENT DATE: 20231101
